FAERS Safety Report 12937366 (Version 1)
Quarter: 2016Q4

REPORT INFORMATION
  Report Type: Spontaneous
  Country: VE (occurrence: VE)
  Receive Date: 20161114
  Receipt Date: 20161114
  Transmission Date: 20170207
  Serious: Yes (Other)
  Sender: FDA-Public Use
  Company Number: PHHY2016VE155148

PATIENT
  Sex: Female

DRUGS (7)
  1. NEMODINE [Concomitant]
     Indication: PRODUCT USED FOR UNKNOWN INDICATION
     Dosage: 75 MG, QD
     Route: 065
     Dates: start: 2012
  2. TEGRETOL [Suspect]
     Active Substance: CARBAMAZEPINE
     Dosage: 800 MG (TEGRETOL 400 MG), QD
     Route: 048
  3. TRILEPTAL [Suspect]
     Active Substance: OXCARBAZEPINE
     Indication: TRIGEMINAL NEURALGIA
     Dosage: 900 MG (TRILEPTAL 300 MG), QD
     Route: 048
  4. TEGRETOL [Suspect]
     Active Substance: CARBAMAZEPINE
     Indication: TRIGEMINAL NEURALGIA
     Dosage: 600 MG (TEGRETOL 200 MG), QD
     Route: 048
  5. TEGRETOL [Suspect]
     Active Substance: CARBAMAZEPINE
     Indication: TRIGEMINAL NEURALGIA
     Dosage: 600 MG (TEGRETOL LC 200 MG), QD
     Route: 048
     Dates: start: 201603
  6. TEGRETOL [Suspect]
     Active Substance: CARBAMAZEPINE
     Dosage: 800 MG (TEGRETOL LC 400 MG), QD
     Route: 048
  7. TRILEPTAL [Suspect]
     Active Substance: OXCARBAZEPINE
     Dosage: 1200 MG (TRILEPTAL 600 MG), QD
     Route: 048

REACTIONS (5)
  - Product use issue [Unknown]
  - Drug ineffective [Unknown]
  - Trigeminal neuralgia [Unknown]
  - Pain [Unknown]
  - Facial pain [Unknown]
